FAERS Safety Report 23334938 (Version 2)
Quarter: 2024Q1

REPORT INFORMATION
  Report Type: Other
  Country: US (occurrence: US)
  Receive Date: 20231225
  Receipt Date: 20240207
  Transmission Date: 20240410
  Serious: Yes (Hospitalization)
  Sender: FDA-Public Use
  Company Number: US-TRAVERE-2023TVT00892

PATIENT
  Age: 64 Year
  Sex: Male

DRUGS (1)
  1. FILSPARI [Suspect]
     Active Substance: SPARSENTAN
     Indication: IgA nephropathy
     Dosage: 400 MG
     Route: 048
     Dates: start: 20230515, end: 20231213

REACTIONS (3)
  - Heart rate decreased [Recovered/Resolved]
  - Drug ineffective [Unknown]
  - Hyperkalaemia [Unknown]
